FAERS Safety Report 19891847 (Version 1)
Quarter: 2021Q3

REPORT INFORMATION
  Report Type: Spontaneous
  Country: CA (occurrence: CA)
  Receive Date: 20210928
  Receipt Date: 20210928
  Transmission Date: 20211014
  Serious: Yes (Hospitalization, Other)
  Sender: FDA-Public Use
  Company Number: CA-TAKEDA-2021TUS057892

PATIENT
  Sex: Male
  Weight: 76 kg

DRUGS (2)
  1. MEZAVANT [Suspect]
     Active Substance: MESALAMINE
     Dosage: 4.8 GRAM
     Route: 065
  2. MEZAVANT [Suspect]
     Active Substance: MESALAMINE
     Indication: CROHN^S DISEASE
     Dosage: 3 GRAM
     Route: 065

REACTIONS (7)
  - Troponin increased [Unknown]
  - Cardiac stress test abnormal [Unknown]
  - Product use in unapproved indication [Unknown]
  - Crohn^s disease [Unknown]
  - Feeling abnormal [Unknown]
  - Stress [Unknown]
  - Heart rate decreased [Unknown]
